FAERS Safety Report 6853900-7 (Version None)
Quarter: 2010Q3

REPORT INFORMATION
  Report Type: 
  Country: None (occurrence: None)
  Receive Date: 20100717
  Receipt Date: 20071223
  Transmission Date: 20110219
  Serious: No
  Sender: FDA-Public Use
  Company Number: US-PFIZER INC-2007107897

PATIENT
  Sex: Female
  Weight: 40.9 kg

DRUGS (8)
  1. CHANTIX [Suspect]
     Indication: SMOKING CESSATION THERAPY
     Dates: start: 20070601
  2. PAXIL [Concomitant]
  3. PLAVIX [Concomitant]
  4. NORVASC [Concomitant]
     Indication: HYPERTENSION
  5. VESICARE [Concomitant]
  6. ZOCOR [Concomitant]
     Indication: BLOOD CHOLESTEROL INCREASED
  7. MOBIC [Concomitant]
  8. DIURETICS [Concomitant]

REACTIONS (5)
  - ABNORMAL DREAMS [None]
  - ANXIETY [None]
  - DEPRESSION [None]
  - NAUSEA [None]
  - TREMOR [None]
